FAERS Safety Report 19180253 (Version 2)
Quarter: 2021Q2

REPORT INFORMATION
  Report Type: Spontaneous
  Country: JP (occurrence: JP)
  Receive Date: 20210426
  Receipt Date: 20210526
  Transmission Date: 20210717
  Serious: Yes (Death)
  Sender: FDA-Public Use
  Company Number: NVSJ2021JP005477

PATIENT
  Age: 79 Year
  Sex: Female

DRUGS (1)
  1. NEORAL [Suspect]
     Active Substance: CYCLOSPORINE
     Indication: APLASTIC ANAEMIA
     Dosage: UNK, LOW DOSE
     Route: 048
     Dates: end: 202103

REACTIONS (5)
  - General physical health deterioration [Fatal]
  - Hepatic function abnormal [Unknown]
  - Product use in unapproved indication [Unknown]
  - Pleural effusion [Fatal]
  - Infection [Fatal]
